FAERS Safety Report 7648983-0 (Version None)
Quarter: 2011Q3

REPORT INFORMATION
  Report Type: 
  Country: None (occurrence: None)
  Receive Date: 20110802
  Receipt Date: 20110725
  Transmission Date: 20111222
  Serious: Yes (Hospitalization, Other)
  Sender: FDA-Public Use
  Company Number: US-BIOGENIDEC-2011BI027945

PATIENT
  Age: 51 Year
  Sex: Female

DRUGS (6)
  1. EFFEXOR [Concomitant]
  2. PROVIGIL [Concomitant]
  3. AVONEX [Concomitant]
     Route: 030
  4. AVONEX [Concomitant]
     Route: 030
  5. TYSABRI [Suspect]
     Indication: MULTIPLE SCLEROSIS
     Route: 042
     Dates: start: 20080602
  6. AVONEX [Concomitant]
     Indication: MULTIPLE SCLEROSIS
     Route: 030

REACTIONS (4)
  - OVERDOSE [None]
  - THERMAL BURN [None]
  - OSTEOARTHRITIS [None]
  - CONVULSION [None]
